FAERS Safety Report 9537399 (Version 1)
Quarter: 2013Q3

REPORT INFORMATION
  Report Type: Spontaneous
  Country: DE (occurrence: DE)
  Receive Date: 20130919
  Receipt Date: 20130919
  Transmission Date: 20140515
  Serious: Yes (Other)
  Sender: FDA-Public Use
  Company Number: PHHY2013DE102386

PATIENT
  Sex: Female

DRUGS (1)
  1. SIGNIFOR [Suspect]
     Dosage: 0.6 MG, BID
     Route: 058

REACTIONS (2)
  - Circulatory collapse [Recovered/Resolved]
  - Hyperglycaemia [Unknown]
